FAERS Safety Report 8405901-5 (Version None)
Quarter: 2012Q2

REPORT INFORMATION
  Report Type: 
  Country: None (occurrence: None)
  Receive Date: 20120529
  Receipt Date: 20060207
  Transmission Date: 20120825
  Serious: Yes (Hospitalization)
  Sender: FDA-Public Use
  Company Number: 15691-USA-06-0406

PATIENT
  Age: 76 Year
  Sex: Male

DRUGS (8)
  1. WARFARIN SODIUM [Concomitant]
  2. FUROSEMIDE [Concomitant]
  3. METOPROLOL TARTRATE [Concomitant]
  4. ENALAPRIL MALEATE [Concomitant]
  5. TOLVAPTAN (TOLVAPTAN(V4.1)) 30MG [Suspect]
     Indication: CARDIAC FAILURE CONGESTIVE
     Dosage: 30 MG, QD, ORAL
     Route: 048
     Dates: start: 20050621, end: 20060117
  6. TOLVAPTAN (TOLVAPTAN(V4.1)) 30MG [Suspect]
     Indication: CARDIAC FAILURE CONGESTIVE
     Dosage: 30 MG, QD, ORAL
     Route: 048
     Dates: start: 20060128
  7. DIGOXIN [Concomitant]
  8. MOLSIDOMIN (MOLSIDOMINE) [Concomitant]

REACTIONS (5)
  - ATRIAL FIBRILLATION [None]
  - HEPATOMEGALY [None]
  - CARDIAC FAILURE [None]
  - CALCULUS URINARY [None]
  - AORTIC ANEURYSM [None]
